FAERS Safety Report 9617383 (Version 1)
Quarter: 2013Q4

REPORT INFORMATION
  Report Type: Spontaneous
  Country: US (occurrence: US)
  Receive Date: 20131011
  Receipt Date: 20131011
  Transmission Date: 20140711
  Serious: Yes (Other)
  Sender: FDA-Public Use
  Company Number: US-BMSGILMSD-2013-0084930

PATIENT
  Sex: Male

DRUGS (21)
  1. ATRIPLA [Suspect]
     Indication: HIV INFECTION
  2. TRUVADA [Suspect]
     Indication: HIV INFECTION
     Dosage: 1 DF, QD
     Route: 048
  3. ISENTRESS [Concomitant]
     Indication: HIV INFECTION
     Dosage: 400 MG, BID
     Route: 048
  4. RITONAVIR [Concomitant]
  5. SUMATRIPTAN [Concomitant]
     Indication: HEADACHE
     Dosage: 50 MG, UNK
     Route: 048
  6. RELPAX [Concomitant]
     Indication: HEADACHE
     Dosage: 40 MG, UNK
     Route: 048
  7. LYRICA [Concomitant]
     Indication: PRODUCT USED FOR UNKNOWN INDICATION
     Dosage: 100 MG, BID
     Route: 048
  8. LORATADINE [Concomitant]
     Indication: HYPERSENSITIVITY
     Dosage: 10 MG, QD
     Route: 048
  9. TRIAMTERENE/HCTZ [Concomitant]
     Indication: PRODUCT USED FOR UNKNOWN INDICATION
     Dosage: 1 DF, QD
     Route: 048
  10. METOPROLOL SUCCINATE [Concomitant]
     Indication: PRODUCT USED FOR UNKNOWN INDICATION
     Dosage: 1 TAB DAILY
     Route: 048
  11. D400 [Concomitant]
     Indication: PRODUCT USED FOR UNKNOWN INDICATION
     Dosage: UNK
     Route: 048
  12. TOPIRAMATE [Concomitant]
     Indication: PRODUCT USED FOR UNKNOWN INDICATION
     Dosage: UNK UNK, BID
     Route: 048
  13. TUMS                               /00193601/ [Concomitant]
     Indication: PRODUCT USED FOR UNKNOWN INDICATION
     Dosage: UNK, PRN
     Route: 048
  14. ACETAMINOPHEN [Concomitant]
     Indication: PRODUCT USED FOR UNKNOWN INDICATION
     Dosage: UNK, PRN
     Route: 048
  15. CYCLOBENZAPRINE [Concomitant]
     Indication: PRODUCT USED FOR UNKNOWN INDICATION
     Dosage: UNK, PRN
     Route: 048
  16. ALBUTEROL                          /00139501/ [Concomitant]
     Indication: WHEEZING
     Dosage: UNK, PRN
  17. ZOLPIDEM TARTRATE [Concomitant]
     Indication: PRODUCT USED FOR UNKNOWN INDICATION
     Dosage: 10 MG, QD
     Route: 048
  18. KLOR-CON M20 [Concomitant]
     Indication: PRODUCT USED FOR UNKNOWN INDICATION
     Dosage: 20 MEQ, QD
     Route: 048
  19. LISINOPRIL [Concomitant]
  20. TRAMADOL [Concomitant]
  21. CRIXIVAN [Concomitant]

REACTIONS (12)
  - Major depression [Unknown]
  - Wheezing [Unknown]
  - Vitamin D deficiency [Unknown]
  - Osteoarthritis [Unknown]
  - Gait disturbance [Unknown]
  - Back pain [Unknown]
  - Neuropathy peripheral [Unknown]
  - Hypertension [Unknown]
  - Cough [Unknown]
  - Asthma [Unknown]
  - Diarrhoea [Unknown]
  - Insomnia [Unknown]
